FAERS Safety Report 4348258-1 (Version None)
Quarter: 2004Q2

REPORT INFORMATION
  Report Type: 
  Country: None (occurrence: None)
  Receive Date: 20040422
  Receipt Date: 20040408
  Transmission Date: 20050107
  Serious: Yes (Other)
  Sender: FDA-Public Use
  Company Number: 2003-BP-06779BP

PATIENT
  Age: 84 Year
  Sex: Male

DRUGS (9)
  1. MICARDIS [Suspect]
     Indication: CARDIOVASCULAR DISORDER
     Dosage: PO
     Route: 048
     Dates: start: 20030312, end: 20030906
  2. MICARDIS [Suspect]
     Indication: CEREBROVASCULAR ACCIDENT PROPHYLAXIS
     Dosage: PO
     Route: 048
     Dates: start: 20030312, end: 20030906
  3. RAMIPRIL [Suspect]
     Indication: CEREBROVASCULAR ACCIDENT PROPHYLAXIS
     Dosage: PO
     Route: 048
     Dates: start: 20030312, end: 20030906
  4. RAMIPRIL [Suspect]
     Indication: PROPHYLAXIS
     Dosage: PO
     Route: 048
     Dates: start: 20030312, end: 20030906
  5. ASPIRIN [Concomitant]
  6. PRAVASTATIN [Concomitant]
  7. FINASTERIDE [Concomitant]
  8. LANSOPRAZOLE [Concomitant]
  9. ATENOLOL [Concomitant]

REACTIONS (4)
  - DRUG ERUPTION [None]
  - HYPERKERATOSIS [None]
  - LICHEN PLANUS [None]
  - SKIN ULCER [None]
